FAERS Safety Report 5068087-3 (Version None)
Quarter: 2006Q3

REPORT INFORMATION
  Report Type: 
  Country: None (occurrence: None)
  Receive Date: 20060717
  Receipt Date: 20060202
  Transmission Date: 20061208
  Serious: Yes (Hospitalization)
  Sender: FDA-Public Use
  Company Number: 2006000278

PATIENT
  Age: 71 Year
  Sex: Male

DRUGS (7)
  1. TARCEVA [Suspect]
     Indication: NON-SMALL CELL LUNG CANCER
     Dosage: 150 MG (QD), ORAL
     Route: 048
     Dates: start: 20051229, end: 20060201
  2. ASPIRIN [Concomitant]
  3. PLAVIX [Concomitant]
  4. ZOMETA [Concomitant]
  5. MORPHINE [Concomitant]
  6. PACERONE [Concomitant]
  7. ACETAMINOPHEN [Concomitant]

REACTIONS (2)
  - GASTROINTESTINAL HAEMORRHAGE [None]
  - HYPOTENSION [None]
